FAERS Safety Report 6766488-6 (Version None)
Quarter: 2010Q2

REPORT INFORMATION
  Report Type: 
  Country: None (occurrence: None)
  Receive Date: 20100611
  Receipt Date: 20100430
  Transmission Date: 20101027
  Serious: Yes (Hospitalization, Other)
  Sender: FDA-Public Use
  Company Number: US-BAYER-201021296NA

PATIENT
  Age: 61 Year
  Sex: Male

DRUGS (2)
  1. BETAPACE [Suspect]
     Indication: VENTRICULAR ARRHYTHMIA
     Route: 048
  2. BETAPACE AF [Suspect]
     Indication: VENTRICULAR ARRHYTHMIA

REACTIONS (2)
  - ARRHYTHMIA [None]
  - CARDIAC ABLATION [None]
